FAERS Safety Report 5629729-4 (Version None)
Quarter: 2008Q1

REPORT INFORMATION
  Report Type: 
  Country: None (occurrence: None)
  Receive Date: 20080218
  Receipt Date: 20080212
  Transmission Date: 20080703
  Serious: Yes (Death, Hospitalization)
  Sender: FDA-Public Use
  Company Number: NO-MERCK-0802NOR00016

PATIENT
  Age: 85 Year
  Sex: Female

DRUGS (3)
  1. FOSAMAX [Suspect]
     Route: 048
     Dates: end: 20080116
  2. DICLOFENAC SODIUM AND MISOPROSTOL [Suspect]
     Route: 048
     Dates: end: 20080116
  3. WARFARIN SODIUM [Suspect]
     Route: 048
     Dates: end: 20080116

REACTIONS (2)
  - DEATH [None]
  - MELAENA [None]
